FAERS Safety Report 15585352 (Version 2)
Quarter: 2018Q4

REPORT INFORMATION
  Report Type: Spontaneous
  Country: US (occurrence: US)
  Receive Date: 20181105
  Receipt Date: 20181116
  Transmission Date: 20190205
  Serious: No
  Sender: FDA-Public Use
  Company Number: US-MYLANLABS-2018M1079109

PATIENT
  Sex: Female

DRUGS (2)
  1. LIDOCAINE PATCH [Suspect]
     Active Substance: LIDOCAINE
     Route: 003
  2. LIDOCAINE PATCH [Suspect]
     Active Substance: LIDOCAINE
     Indication: PAIN
     Dosage: UNK
     Route: 003

REACTIONS (11)
  - Wrong technique in product usage process [Unknown]
  - Overdose [Unknown]
  - Product quality issue [Unknown]
  - Off label use [Unknown]
  - Palpitations [Unknown]
  - Malaise [Unknown]
  - Visual impairment [Unknown]
  - Anxiety [Unknown]
  - Product adhesion issue [Unknown]
  - Drug hypersensitivity [Unknown]
  - Drug ineffective [Unknown]
